FAERS Safety Report 17815844 (Version 1)
Quarter: 2020Q2

REPORT INFORMATION
  Report Type: Spontaneous
  Country: US (occurrence: US)
  Receive Date: 20200522
  Receipt Date: 20200522
  Transmission Date: 20200714
  Serious: No
  Sender: FDA-Public Use
  Company Number: None

PATIENT
  Age: 43 Year
  Sex: Male
  Weight: 74.25 kg

DRUGS (6)
  1. BORON. [Concomitant]
     Active Substance: BORON
  2. TRAZODONE [Concomitant]
     Active Substance: TRAZODONE HYDROCHLORIDE
  3. GABAPENTIN. [Suspect]
     Active Substance: GABAPENTIN
     Indication: ALCOHOLISM
  4. ALPRAZOLAM. [Concomitant]
     Active Substance: ALPRAZOLAM
  5. MULTIVITAMIN [Concomitant]
     Active Substance: VITAMINS
  6. VALIUM [Suspect]
     Active Substance: DIAZEPAM

REACTIONS (6)
  - Gait disturbance [None]
  - Mental impairment [None]
  - Palpitations [None]
  - Hyperhidrosis [None]
  - Dizziness [None]
  - Aphasia [None]

NARRATIVE: CASE EVENT DATE: 20200519
